FAERS Safety Report 7994644-8 (Version None)
Quarter: 2011Q4

REPORT INFORMATION
  Report Type: 
  Country: None (occurrence: None)
  Receive Date: 20111220
  Receipt Date: 20111209
  Transmission Date: 20120403
  Serious: Yes (Other)
  Sender: FDA-Public Use
  Company Number: US-BAYER-2011-083364

PATIENT
  Age: 47 Year
  Sex: Female
  Weight: 73.469 kg

DRUGS (6)
  1. KLONOPIN [Concomitant]
     Dosage: UNK
     Dates: start: 19990101
  2. YAZ [Suspect]
     Indication: PREMENSTRUAL SYNDROME
  3. CYMBALTA [Concomitant]
     Dosage: UNK
     Dates: start: 19990101
  4. ZYRTEC [Concomitant]
     Dosage: UNK
     Dates: start: 19990101
  5. YAZ [Suspect]
     Indication: ACNE
     Dosage: UNK
     Route: 048
     Dates: start: 19990101, end: 20030101
  6. NASONEX [Concomitant]
     Dosage: UNK
     Dates: start: 19990101

REACTIONS (6)
  - ANHEDONIA [None]
  - CHOLECYSTECTOMY [None]
  - PAIN [None]
  - INJURY [None]
  - ANXIETY [None]
  - EMOTIONAL DISTRESS [None]
